FAERS Safety Report 4661936-X (Version None)
Quarter: 2005Q2

REPORT INFORMATION
  Report Type: 
  Country: None (occurrence: None)
  Receive Date: 20050513
  Receipt Date: 20050227
  Transmission Date: 20051028
  Serious: Yes (Hospitalization)
  Sender: FDA-Public Use
  Company Number: GB-MERCK-0503GBR00010

PATIENT
  Age: 60 Year
  Sex: Female

DRUGS (6)
  1. ZOCOR [Suspect]
     Indication: HYPERCHOLESTEROLAEMIA
     Route: 048
     Dates: start: 20020601, end: 20040331
  2. RAMIPRIL [Concomitant]
     Indication: VENTRICULAR DYSFUNCTION
     Route: 065
     Dates: start: 20020601
  3. RAMIPRIL [Concomitant]
     Indication: HYPERTENSION
     Route: 065
     Dates: start: 20020601
  4. CLOPIDOGREL BISULFATE [Concomitant]
     Indication: MYOCARDIAL ISCHAEMIA
     Route: 065
     Dates: start: 20030101
  5. CLOPIDOGREL BISULFATE [Concomitant]
     Indication: HYPERTENSION
     Route: 065
     Dates: start: 20030101
  6. OMEPRAZOLE [Concomitant]
     Indication: DYSPEPSIA
     Route: 065
     Dates: start: 20030101

REACTIONS (3)
  - DIARRHOEA [None]
  - HEPATITIS A [None]
  - MYOSITIS [None]
